FAERS Safety Report 9708303 (Version 1)
Quarter: 2013Q4

REPORT INFORMATION
  Report Type: Report from Study
  Country: RU (occurrence: RU)
  Receive Date: 20131125
  Receipt Date: 20131125
  Transmission Date: 20140711
  Serious: Yes (Hospitalization)
  Sender: FDA-Public Use
  Company Number: RU-SA-2013SA118443

PATIENT
  Age: 64 Year
  Sex: Female

DRUGS (5)
  1. PLAVIX [Suspect]
     Indication: THROMBOSIS PROPHYLAXIS
     Route: 048
     Dates: start: 201112, end: 201305
  2. PRESTANCE [Concomitant]
     Indication: HYPERTENSION
     Route: 048
  3. CONCOR [Concomitant]
     Indication: HYPERTENSION
  4. CARDIOMAGNYL [Concomitant]
     Indication: THROMBOSIS PROPHYLAXIS
     Route: 048
  5. ROSUVASTATIN [Concomitant]
     Indication: LIPIDS INCREASED
     Route: 048

REACTIONS (2)
  - Angina unstable [Recovered/Resolved]
  - Intentional drug misuse [Unknown]
